FAERS Safety Report 5113790-X (Version None)
Quarter: 2006Q3

REPORT INFORMATION
  Report Type: 
  Country: None (occurrence: None)
  Receive Date: 20060921
  Receipt Date: 20060921
  Transmission Date: 20061208
  Serious: Yes (Life-Threatening, Hospitalization, Disabling)
  Sender: FDA-Public Use
  Company Number: None

PATIENT
  Sex: Male

DRUGS (3)
  1. DOPAMINE HCL IN 5% DEXTROSE [Suspect]
     Indication: CARDIO-RESPIRATORY ARREST
     Dosage: TITRATE TO ADEQUATE BP   CONTINUOUS   IV DRIP
     Route: 041
     Dates: start: 20060827, end: 20060828
  2. DOPAMINE HCL IN 5% DEXTROSE [Suspect]
     Indication: HYPOTENSION
     Dosage: TITRATE TO ADEQUATE BP   CONTINUOUS   IV DRIP
     Route: 041
     Dates: start: 20060827, end: 20060828
  3. DOPAMINE HCL IN 5% DEXTROSE [Suspect]

REACTIONS (5)
  - BLOOD PRESSURE ABNORMAL [None]
  - CARDIAC ARREST [None]
  - DRUG DISPENSING ERROR [None]
  - INCORRECT DOSE ADMINISTERED [None]
  - MEDICATION ERROR [None]
